FAERS Safety Report 10874359 (Version 1)
Quarter: 2015Q1

REPORT INFORMATION
  Report Type: Spontaneous
  Country: US (occurrence: None)
  Receive Date: 20150224
  Receipt Date: 20150224
  Transmission Date: 20150721
  Serious: Yes (Hospitalization)
  Sender: FDA-Public Use
  Company Number: ZYD-15-AE-062

PATIENT
  Age: 58 Year
  Sex: Female

DRUGS (10)
  1. IRBESARTAN. [Concomitant]
     Active Substance: IRBESARTAN
  2. SIMVASTATIN. [Concomitant]
     Active Substance: SIMVASTATIN
  3. AZIOTHIOPRINE [Concomitant]
  4. WARFARIN [Suspect]
     Active Substance: WARFARIN
     Indication: ANTICOAGULANT THERAPY
  5. LEVOFLOXACIN. [Suspect]
     Active Substance: LEVOFLOXACIN
     Indication: BRONCHITIS
     Route: 048
     Dates: start: 20150105, end: 20150110
  6. HYDROCHLOROTHIAZIDE. [Concomitant]
     Active Substance: HYDROCHLOROTHIAZIDE
  7. POLYETHYLENE GLYCOL [Concomitant]
     Active Substance: POLYETHYLENE GLYCOLS
  8. CARVEDILOL. [Concomitant]
     Active Substance: CARVEDILOL
  9. RANITIDINE [Concomitant]
     Active Substance: RANITIDINE\RANITIDINE HYDROCHLORIDE
  10. POLY-IRON 150 MG POLYSACCRIDE IRON CONTRACT PHARMACAL CORPORATION [Concomitant]
     Active Substance: DIETARY SUPPLEMENT

REACTIONS (2)
  - Myopathy [None]
  - International normalised ratio increased [None]

NARRATIVE: CASE EVENT DATE: 20150110
